FAERS Safety Report 9308968 (Version 1)
Quarter: 2013Q2

REPORT INFORMATION
  Report Type: Spontaneous
  Country: IL (occurrence: IL)
  Receive Date: 20130524
  Receipt Date: 20130524
  Transmission Date: 20140414
  Serious: Yes (Death, Life-Threatening, Hospitalization, Other)
  Sender: FDA-Public Use
  Company Number: IL-B.I. PHARMACEUTICALS,INC./RIDGEFIELD-2013-AP-00403RI

PATIENT
  Age: 84 Year
  Sex: Female

DRUGS (2)
  1. PRADAXA [Suspect]
     Indication: ATRIAL FIBRILLATION
     Dosage: 220 MG
     Route: 048
     Dates: start: 201301, end: 20130315
  2. GLUCOPHAGE [Concomitant]

REACTIONS (7)
  - Sepsis [Fatal]
  - Haematuria [Fatal]
  - Rectal haemorrhage [Fatal]
  - Skin haemorrhage [Fatal]
  - Circulatory collapse [Fatal]
  - Renal impairment [Fatal]
  - Diarrhoea [Unknown]
